FAERS Safety Report 9249845 (Version 2)
Quarter: 2013Q2

REPORT INFORMATION
  Report Type: Report from Study
  Country: US (occurrence: US)
  Receive Date: 20130423
  Receipt Date: 20130501
  Transmission Date: 20140414
  Serious: Yes (Hospitalization, Disabling)
  Sender: FDA-Public Use
  Company Number: US-US-EMD SERONO, INC.-7206326

PATIENT
  Age: 42 Year
  Sex: Female
  Weight: 68 kg

DRUGS (3)
  1. REBIF [Suspect]
     Indication: MULTIPLE SCLEROSIS
     Route: 058
     Dates: start: 20110405
  2. ADVIL                              /00109201/ [Concomitant]
     Indication: PREMEDICATION
  3. ADVIL                              /00109201/ [Concomitant]
     Indication: MUSCULOSKELETAL DISCOMFORT

REACTIONS (5)
  - Intervertebral disc protrusion [Recovering/Resolving]
  - Anaesthetic complication [Unknown]
  - Influenza like illness [Recovering/Resolving]
  - Injection site bruising [Unknown]
  - Injection site pain [Unknown]
